FAERS Safety Report 6621040-8 (Version None)
Quarter: 2010Q1

REPORT INFORMATION
  Report Type: 
  Country: None (occurrence: None)
  Receive Date: 20100309
  Receipt Date: 20100301
  Transmission Date: 20100710
  Serious: Yes (Hospitalization)
  Sender: FDA-Public Use
  Company Number: A0730983A

PATIENT
  Age: 59 Year
  Sex: Male
  Weight: 98.2 kg

DRUGS (10)
  1. AVANDIA [Suspect]
     Dosage: 4MG PER DAY
     Route: 048
     Dates: start: 19990101, end: 20070707
  2. XANAX [Concomitant]
  3. VITAMIN TAB [Concomitant]
  4. VICOPROFEN [Concomitant]
  5. STARLIX [Concomitant]
  6. ATENOLOL [Concomitant]
  7. VASOTEC [Concomitant]
  8. XANAX [Concomitant]
  9. LIPITOR [Concomitant]
  10. TRICOR [Concomitant]

REACTIONS (2)
  - ACUTE MYOCARDIAL INFARCTION [None]
  - MYOCARDIAL ISCHAEMIA [None]
